FAERS Safety Report 13022116 (Version 1)
Quarter: 2016Q4

REPORT INFORMATION
  Report Type: Spontaneous
  Country: TR (occurrence: TR)
  Receive Date: 20161213
  Receipt Date: 20161213
  Transmission Date: 20170207
  Serious: Yes (Hospitalization)
  Sender: FDA-Public Use
  Company Number: TR-HQ SPECIALTY-TR-2016INT000991

PATIENT
  Sex: Male
  Weight: 3.25 kg

DRUGS (4)
  1. DOBUTAMINE [Suspect]
     Active Substance: DOBUTAMINE\DOBUTAMINE HYDROCHLORIDE
     Indication: RESPIRATORY DISTRESS
     Dosage: UNK
  2. MAGNESIUM SULFATE IN 5% DEXTROSE [Suspect]
     Active Substance: MAGNESIUM SULFATE HEPTAHYDRATE
     Indication: RESPIRATORY DISTRESS
     Dosage: 20 MEQ/KG INFUSED OVER HALF AN HOUR
  3. MAGNESIUM SULFATE IN 5% DEXTROSE [Suspect]
     Active Substance: MAGNESIUM SULFATE HEPTAHYDRATE
     Indication: TACHYPNOEA
     Dosage: CONTINUOUS INFUSION AT 8 MEQ/KG/HOUR
  4. DOBUTAMINE [Suspect]
     Active Substance: DOBUTAMINE\DOBUTAMINE HYDROCHLORIDE
     Indication: TACHYPNOEA
     Dosage: 10 MCG/KG PER MINUTE

REACTIONS (7)
  - Hypermagnesaemia [Recovering/Resolving]
  - Hyporesponsive to stimuli [Recovering/Resolving]
  - Sinus bradycardia [Recovering/Resolving]
  - Hypotonia [Recovering/Resolving]
  - Hypotension [Recovering/Resolving]
  - Apnoea [Recovering/Resolving]
  - Pulmonary hypertension [Recovering/Resolving]
